FAERS Safety Report 14178793 (Version 2)
Quarter: 2017Q4

REPORT INFORMATION
  Report Type: Spontaneous
  Country: US (occurrence: US)
  Receive Date: 20171110
  Receipt Date: 20171206
  Transmission Date: 20180321
  Serious: No
  Sender: FDA-Public Use
  Company Number: US-PFIZER INC-2017481789

PATIENT
  Age: 64 Year
  Sex: Female
  Weight: 86.18 kg

DRUGS (10)
  1. RESTASIS [Concomitant]
     Active Substance: CYCLOSPORINE
     Dosage: IN EYES, THREE TIMES A DAY
  2. GABAPENTIN. [Suspect]
     Active Substance: GABAPENTIN
     Dosage: 900 MG, 2X/DAY
     Route: 048
  3. NITROGLYCERIN. [Concomitant]
     Active Substance: NITROGLYCERIN
     Dosage: TABLET, AS NEEDED
  4. RANITIDINE. [Concomitant]
     Active Substance: RANITIDINE
     Indication: GASTROOESOPHAGEAL REFLUX DISEASE
     Dosage: 150MG, TABLET, TWICE A DAY
  5. VITAMIN C [Concomitant]
     Active Substance: ASCORBIC ACID
     Indication: IMMUNE SYSTEM DISORDER
     Dosage: 1000MG. CONSUMER WAS TAKING VITAMIN C EVERYDAY, ONCE A DAY.
  6. SPIRONOLACTONE. [Concomitant]
     Active Substance: SPIRONOLACTONE
     Indication: BLOOD PRESSURE ABNORMAL
     Dosage: 25MG, TABLET, ONCE EVERY OTHER DAY
  7. ROSUVASTATIN CALCIUM. [Concomitant]
     Active Substance: ROSUVASTATIN CALCIUM
     Indication: BLOOD CHOLESTEROL ABNORMAL
     Dosage: 20MG, TABLET, ONE TIME A DAY
  8. LOSARTAN. [Concomitant]
     Active Substance: LOSARTAN
     Indication: BLOOD PRESSURE ABNORMAL
     Dosage: 50MG, TABLET, ONE TIME A DAY
  9. VITAMIN D [Concomitant]
     Active Substance: CHOLECALCIFEROL
     Indication: BONE DISORDER
     Dosage: 500MG, TABLET, ONE TIME A DAY
  10. VITAMIN B12 [Concomitant]
     Active Substance: CYANOCOBALAMIN
     Dosage: 500 MG, ONCE A DAY

REACTIONS (2)
  - Malaise [Unknown]
  - Drug ineffective [Unknown]
